FAERS Safety Report 24338799 (Version 1)
Quarter: 2024Q3

REPORT INFORMATION
  Report Type: Spontaneous
  Country: US (occurrence: None)
  Receive Date: 20240918
  Receipt Date: 20240918
  Transmission Date: 20241017
  Serious: No
  Sender: Public
  Company Number: None

PATIENT

DRUGS (2)
  1. K-PHOS NO. 2 [Suspect]
     Active Substance: POTASSIUM PHOSPHATE, MONOBASIC\SODIUM PHOSPHATE, MONOBASIC, ANHYDROUS
  2. SIROLIMUS [Suspect]
     Active Substance: SIROLIMUS

REACTIONS (1)
  - Drug intolerance [None]
